FAERS Safety Report 7271895-1 (Version None)
Quarter: 2011Q1

REPORT INFORMATION
  Report Type: 
  Country: None (occurrence: None)
  Receive Date: 20110131
  Receipt Date: 20110131
  Transmission Date: 20110831
  Serious: No
  Sender: FDA-Public Use
  Company Number: None

PATIENT
  Age: 72 Year
  Sex: Male

DRUGS (1)
  1. PACLITAXEL [Suspect]
     Dosage: 400 MG ONCE IV
     Route: 042
     Dates: start: 20110110, end: 20110110

REACTIONS (2)
  - FLUSHING [None]
  - DYSPNOEA [None]
